FAERS Safety Report 5037278-X (Version None)
Quarter: 2006Q2

REPORT INFORMATION
  Report Type: 
  Country: None (occurrence: None)
  Receive Date: 20060628
  Receipt Date: 20060621
  Transmission Date: 20061013
  Serious: Yes (Hospitalization)
  Sender: FDA-Public Use
  Company Number: FR-ROCHE-452745

PATIENT
  Age: 78 Year
  Sex: Female
  Weight: 58 kg

DRUGS (10)
  1. ROCEPHIN [Suspect]
     Indication: DRUG USE FOR UNKNOWN INDICATION
     Dosage: FORM REPORTED AS INJECTABLE SOLUTION. STRENGTH REPORTED AS 2 G/40 ML.
     Route: 042
     Dates: start: 20060506, end: 20060516
  2. RANIPLEX [Suspect]
     Indication: DRUG USE FOR UNKNOWN INDICATION
     Dosage: DOSING AMOUNT REPORTED AS ONE DOSE (A VIAL)/CYCLE. FORM REPORTED AS INJECTABLE SOLUTION.
     Route: 042
     Dates: start: 20060426
  3. CARBOPLATIN [Suspect]
     Indication: DRUG USE FOR UNKNOWN INDICATION
     Dosage: DOSE REPORTED AS 400 MG/CYCLE.
     Route: 042
     Dates: start: 20060426
  4. CIFLOX [Suspect]
     Indication: DRUG USE FOR UNKNOWN INDICATION
     Dosage: FORM REPORTED AS INJECTABLE AMPULE (AMPOUL), ROUTE INTRAVENOUS, STRENGTH 200 MG/100 ML.
     Route: 050
     Dates: start: 20060506, end: 20060516
  5. CIFLOX [Suspect]
     Dosage: ROUTE ORAL.
     Route: 050
     Dates: start: 20060516, end: 20060518
  6. TAXOL [Suspect]
     Indication: DRUG USE FOR UNKNOWN INDICATION
     Dosage: DOSE REPORTED AS 260 MG/CYCLE.
     Route: 042
     Dates: start: 20060426
  7. SOLU-MEDROL [Concomitant]
     Dosage: PREMEDICATION.
  8. POLARAMINE [Concomitant]
     Dosage: A VIAL, PREMEDICATION.
  9. ZOPHREN [Concomitant]
     Dosage: A VIAL, PREMEDICATION.
  10. PRIMPERAN TAB [Concomitant]
     Dosage: A VIAL, PREMEDICATION.

REACTIONS (1)
  - DERMATITIS EXFOLIATIVE [None]
